FAERS Safety Report 13664010 (Version 2)
Quarter: 2017Q3

REPORT INFORMATION
  Report Type: Report from Study
  Country: IL (occurrence: IL)
  Receive Date: 20170619
  Receipt Date: 20170707
  Transmission Date: 20171127
  Serious: Yes (Hospitalization, Other)
  Sender: FDA-Public Use
  Company Number: IL-PFIZER INC-2017262179

PATIENT
  Age: 18 Year
  Sex: Female
  Weight: 45 kg

DRUGS (1)
  1. XALKORI [Suspect]
     Active Substance: CRIZOTINIB
     Indication: ANAPLASTIC LARGE-CELL LYMPHOMA
     Dosage: 250 MG, 2X/DAY
     Route: 048
     Dates: start: 20160323, end: 20170528

REACTIONS (8)
  - Deep vein thrombosis [Unknown]
  - Hypoalbuminaemia [Recovered/Resolved with Sequelae]
  - Generalised oedema [Recovered/Resolved with Sequelae]
  - Localised oedema [Unknown]
  - Blood lactate dehydrogenase increased [Unknown]
  - Oliguria [Unknown]
  - Weight increased [Recovered/Resolved]
  - Blood fibrinogen decreased [Unknown]

NARRATIVE: CASE EVENT DATE: 201705
